FAERS Safety Report 13269571 (Version 8)
Quarter: 2018Q3

REPORT INFORMATION
  Report Type: Spontaneous
  Country: GB (occurrence: GB)
  Receive Date: 20170224
  Receipt Date: 20180730
  Transmission Date: 20181010
  Serious: Yes (Hospitalization, Other)
  Sender: FDA-Public Use
  Company Number: GB-PFIZER INC-2017074388

PATIENT
  Age: 46 Year
  Sex: Female

DRUGS (11)
  1. EPILIM [Concomitant]
     Active Substance: VALPROATE SODIUM
     Dosage: UNK
  2. HUMIRA [Suspect]
     Active Substance: ADALIMUMAB
     Dosage: 40 MG, WEEKLY
     Route: 058
     Dates: end: 20160923
  3. OLANZAPINE. [Concomitant]
     Active Substance: OLANZAPINE
     Dosage: UNK
  4. HUMIRA [Suspect]
     Active Substance: ADALIMUMAB
     Indication: HIDRADENITIS
     Dosage: UNK
     Route: 058
     Dates: start: 201511, end: 201605
  5. ROACTEMRA [Suspect]
     Active Substance: TOCILIZUMAB
     Indication: RHEUMATOID ARTHRITIS
     Dosage: 162 MG, UNK
     Route: 058
     Dates: end: 20151119
  6. PARACETAMOL [Concomitant]
     Active Substance: ACETAMINOPHEN
     Dosage: 1 G, UNK
  7. CELECOXIB. [Concomitant]
     Active Substance: CELECOXIB
     Dosage: 100 MG, 1X/DAY
  8. RIFAMPICIN [Suspect]
     Active Substance: RIFAMPIN
     Dosage: 300 MG, 1X/DAY
     Route: 048
     Dates: start: 201606, end: 20160923
  9. HYDROXYCHLOROQUINE [Concomitant]
     Active Substance: HYDROXYCHLOROQUINE
     Dosage: 200 MG, 1X/DAY
  10. CLINDAMYCIN PHOSPHATE. [Suspect]
     Active Substance: CLINDAMYCIN PHOSPHATE
     Dosage: 300 MG, DAILY
     Dates: start: 201606, end: 20160923
  11. SULFASALAZINE. [Concomitant]
     Active Substance: SULFASALAZINE
     Dosage: 1 G, 1X/DAY

REACTIONS (3)
  - Adenocarcinoma [Unknown]
  - Tubo-ovarian abscess [Recovering/Resolving]
  - Disease progression [Recovered/Resolved]

NARRATIVE: CASE EVENT DATE: 2016
